FAERS Safety Report 11651298 (Version 6)
Quarter: 2015Q4

REPORT INFORMATION
  Report Type: Spontaneous
  Country: IT (occurrence: IT)
  Receive Date: 20151022
  Receipt Date: 20151027
  Transmission Date: 20160304
  Serious: Yes (Hospitalization, Other)
  Sender: FDA-Public Use
  Company Number: PHHY2015IT123782

PATIENT
  Age: 52 Year
  Sex: Female

DRUGS (14)
  1. METHOTREXATE [Suspect]
     Active Substance: METHOTREXATE
     Dosage: 10 MG, WEEKLY
     Route: 065
     Dates: start: 201202
  2. LANSOPRAZOLE. [Concomitant]
     Active Substance: LANSOPRAZOLE
     Indication: GASTRITIS EROSIVE
     Dosage: 30 MG, UNK
     Route: 048
  3. METHOTREXATE [Suspect]
     Active Substance: METHOTREXATE
     Indication: POLYMYOSITIS
     Dosage: 15 MG, CYCLIC
     Route: 030
     Dates: start: 20040401, end: 20111127
  4. EUTIROX [Concomitant]
     Active Substance: LEVOTHYROXINE SODIUM
     Indication: HYPOTHYROIDISM
     Dosage: 75 UG, UNK
     Route: 048
  5. ROACTEMRA [Concomitant]
     Active Substance: TOCILIZUMAB
     Indication: INFECTION
  6. ACTONEL [Concomitant]
     Active Substance: RISEDRONATE SODIUM
     Indication: OSTEOPOROSIS
     Dosage: 35 MG, UNK
     Route: 048
  7. MABTHERA [Suspect]
     Active Substance: RITUXIMAB
     Dosage: 375 MG/M2, WEEKLY, FOR 4 WEEKS (REPORTED AS 3RD INFUSION)
     Route: 065
     Dates: start: 201202
  8. CARDIOASPIRIN [Concomitant]
     Active Substance: ASPIRIN
     Indication: THROMBOSIS PROPHYLAXIS
     Dosage: 100 MG, FOR 5 YEARS
     Route: 048
  9. NATECAL D3 [Concomitant]
     Active Substance: CALCIUM CARBONATE\CHOLECALCIFEROL
     Indication: OSTEOPOROSIS
     Route: 048
  10. SANDIMMUN NEORAL [Suspect]
     Active Substance: CYCLOSPORINE
     Indication: POLYMYOSITIS
     Dosage: 100 MG, QD
     Route: 048
     Dates: start: 20040401, end: 20111127
  11. DELTACORTENE [Suspect]
     Active Substance: PREDNISONE
     Indication: POLYMYOSITIS
     Dosage: 5 MG, QD, CYCLIC (DAILY)
     Route: 048
     Dates: start: 20040601, end: 20111127
  12. MABTHERA [Suspect]
     Active Substance: RITUXIMAB
     Dosage: 375 MG/M2, WEEKLY,ONCE A WEEK (REPORTED AS 2RD INFUSION)
     Route: 065
     Dates: start: 201202
  13. ROACTEMRA [Concomitant]
     Active Substance: TOCILIZUMAB
     Indication: ARTHROPATHY
     Route: 065
  14. MABTHERA [Suspect]
     Active Substance: RITUXIMAB
     Indication: POLYMYOSITIS
     Dosage: 1 G, CYCLIC
     Route: 042
     Dates: start: 20100401, end: 20110401

REACTIONS (17)
  - Nasopharyngitis [Recovered/Resolved]
  - Alanine aminotransferase increased [Unknown]
  - Off label use [Unknown]
  - Rheumatoid arthritis [Unknown]
  - Troponin T increased [Unknown]
  - Pyrexia [Unknown]
  - Blood lactate dehydrogenase increased [Unknown]
  - Oropharyngeal pain [Unknown]
  - Urinary tract infection [Recovered/Resolved]
  - Blood creatine phosphokinase MB [Unknown]
  - Aspartate aminotransferase increased [Unknown]
  - Dysuria [Unknown]
  - Oropharyngitis fungal [Unknown]
  - Upper respiratory tract infection [Unknown]
  - Blood creatine phosphokinase increased [Unknown]
  - Platelet count decreased [Unknown]
  - Haemoglobin decreased [Unknown]

NARRATIVE: CASE EVENT DATE: 2010
